FAERS Safety Report 14245557 (Version 1)
Quarter: 2017Q4

REPORT INFORMATION
  Report Type: Spontaneous
  Country: AU (occurrence: AU)
  Receive Date: 20171203
  Receipt Date: 20171203
  Transmission Date: 20180321
  Serious: Yes (Hospitalization)
  Sender: FDA-Public Use
  Company Number: AU-ESPERO PHARMACEUTICALS-ESP201711-000091

PATIENT

DRUGS (6)
  1. NITROGLYCERIN. [Suspect]
     Active Substance: NITROGLYCERIN
  2. OXAZEPAM. [Concomitant]
     Active Substance: OXAZEPAM
  3. FUROSEMIDE. [Suspect]
     Active Substance: FUROSEMIDE
  4. AMLODIPINE [Suspect]
     Active Substance: AMLODIPINE BESYLATE
  5. CANDESARTAN. [Suspect]
     Active Substance: CANDESARTAN
  6. METOPROLOL. [Suspect]
     Active Substance: METOPROLOL

REACTIONS (4)
  - Hypotension [Unknown]
  - Drug interaction [Unknown]
  - Syncope [Unknown]
  - Dizziness [Unknown]
